FAERS Safety Report 11239463 (Version 1)
Quarter: 2015Q3

REPORT INFORMATION
  Report Type: Spontaneous
  Country: DE (occurrence: DE)
  Receive Date: 20150706
  Receipt Date: 20150706
  Transmission Date: 20151125
  Serious: Yes (Disabling)
  Sender: FDA-Public Use
  Company Number: DE-009507513-1506DEU014688

PATIENT
  Age: 25 Year
  Sex: Female

DRUGS (1)
  1. NUVARING [Suspect]
     Active Substance: ETHINYL ESTRADIOL\ETONOGESTREL
     Indication: CONTRACEPTION
     Dosage: UNK
     Route: 067
     Dates: start: 2012

REACTIONS (9)
  - Night sweats [Unknown]
  - Irritability [Unknown]
  - Secretion discharge [Unknown]
  - Loss of libido [Unknown]
  - Abdominal pain lower [Unknown]
  - Listless [Unknown]
  - Headache [Unknown]
  - Cystitis [Unknown]
  - Breast discomfort [Unknown]
